FAERS Safety Report 10229349 (Version 1)
Quarter: 2014Q2

REPORT INFORMATION
  Report Type: Report from Study
  Country: US (occurrence: US)
  Receive Date: 20140611
  Receipt Date: 20140611
  Transmission Date: 20141212
  Serious: Yes (Other)
  Sender: FDA-Public Use
  Company Number: US-MYLANLABS-2014S1013079

PATIENT
  Sex: Female

DRUGS (2)
  1. CLARAVIS [Suspect]
  2. AMNESTEEM CAPSULES [Suspect]

REACTIONS (1)
  - Suicidal ideation [Not Recovered/Not Resolved]
